FAERS Safety Report 6798097-7 (Version None)
Quarter: 2010Q2

REPORT INFORMATION
  Report Type: 
  Country: None (occurrence: None)
  Receive Date: 20100616
  Receipt Date: 20100603
  Transmission Date: 20101027
  Serious: Yes (Hospitalization)
  Sender: FDA-Public Use
  Company Number: WAES 1006USA01744

PATIENT
  Age: 57 Year
  Sex: Male

DRUGS (18)
  1. PRINIVIL [Suspect]
     Indication: HYPERTENSION
     Dosage: 20 MG/BID/PO
     Route: 048
  2. PRAVACHOL [Suspect]
     Indication: BLOOD CHOLESTEROL INCREASED
     Dosage: 10 MG/DAILY/PO
     Route: 048
  3. COUMADIN [Suspect]
     Indication: ANTICOAGULANT THERAPY
     Dosage: 5 MG/DAILY/PO
     Route: 048
  4. NITROGLYCERIN [Suspect]
     Indication: CHEST PAIN
     Dosage: 0.4 MG/PRN/SL
     Route: 060
  5. AMOXICILLIN [Suspect]
     Dosage: 500 MG/TID/PO
     Route: 048
  6. ZOLOFT [Suspect]
     Indication: DEPRESSION
     Dosage: 100 MG/DAILY/PO
     Route: 048
     Dates: start: 20090101, end: 20100301
  7. TAB VIAGRA UNK [Concomitant]
     Indication: ERECTILE DYSFUNCTION
     Dosage: 25 MG/
  8. NEXIUM [Suspect]
     Indication: GASTROOESOPHAGEAL REFLUX DISEASE
     Dosage: 40 MG/BID/
  9. CORDARONE [Suspect]
     Dosage: 200 MG/BID/
  10. LANOXIN [Suspect]
     Dosage: 0.25 MG/DAILY/
  11. NASONEX [Suspect]
     Dosage: 4 DOSE/DAILY/
  12. LOPRESSOR [Suspect]
     Indication: ATRIAL FIBRILLATION
     Dosage: 25 MG/BID/
  13. MUCINEX [Suspect]
     Dosage: 600 MG/BID/PO
     Route: 048
  14. TAB LORAZEPAM UNK [Suspect]
     Dosage: 0.5 MG/PRN/
  15. COMPAZINE [Suspect]
     Dosage: 10 MG/BID/
  16. FLONASE [Suspect]
     Dosage: 4 DOSE/DAILY/
  17. PROAIR (PROCATEROL HYDROCHLORIDE) UNK [Suspect]
     Indication: DYSPNOEA
     Dosage: 2 PUFF/PRN/
  18. PRISTIQ UNK [Suspect]
     Indication: DEPRESSION
     Dosage: 50 MG/AM/PO
     Route: 048

REACTIONS (23)
  - ANGINA UNSTABLE [None]
  - ANXIETY [None]
  - ASTHENIA [None]
  - ATRIAL FIBRILLATION [None]
  - BARRETT'S OESOPHAGUS [None]
  - BENIGN PROSTATIC HYPERPLASIA [None]
  - BLOOD CHOLESTEROL INCREASED [None]
  - CALCULUS URETERIC [None]
  - CHEST PAIN [None]
  - CONSTIPATION [None]
  - DRUG INEFFECTIVE [None]
  - DYSPNOEA [None]
  - ELECTROCARDIOGRAM ST SEGMENT DEPRESSION [None]
  - ELECTROCARDIOGRAM T WAVE ABNORMAL [None]
  - ERECTILE DYSFUNCTION [None]
  - GASTROENTERITIS [None]
  - HYPERHIDROSIS [None]
  - HYPERTENSION [None]
  - MYOCARDIAL ISCHAEMIA [None]
  - NAUSEA [None]
  - PANCREATITIS [None]
  - RHINITIS ALLERGIC [None]
  - SINUS BRADYCARDIA [None]
